FAERS Safety Report 24965056 (Version 4)
Quarter: 2025Q2

REPORT INFORMATION
  Report Type: Spontaneous
  Country: US (occurrence: US)
  Receive Date: 20250213
  Receipt Date: 20250530
  Transmission Date: 20250717
  Serious: Yes (Hospitalization, Other)
  Sender: CHEPLAPHARM
  Company Number: US-CHEPLA-2025001854

PATIENT
  Age: 70 Year
  Sex: Male
  Weight: 80 kg

DRUGS (12)
  1. CAPECITABINE [Suspect]
     Active Substance: CAPECITABINE
     Dates: start: 20241112
  2. OXALIPLATIN [Suspect]
     Active Substance: OXALIPLATIN
  3. ASPIRIN [Concomitant]
     Active Substance: ASPIRIN
     Dates: start: 20220302
  4. ASPIRIN [Concomitant]
     Active Substance: ASPIRIN
     Dates: start: 20231108
  5. CYANOCOBALAMIN [Concomitant]
     Active Substance: CYANOCOBALAMIN
     Dates: start: 202210
  6. ONDANSETRON [Concomitant]
     Active Substance: ONDANSETRON
     Dates: start: 20240904
  7. PANTOPRAZOLE [Concomitant]
     Active Substance: PANTOPRAZOLE
     Dates: start: 20241009
  8. ROSUVASTATIN [Concomitant]
     Active Substance: ROSUVASTATIN
     Dates: start: 20240524
  9. TADALAFIL [Concomitant]
     Active Substance: TADALAFIL
     Dates: start: 20240515
  10. PROCHLORPERAZINE [Concomitant]
     Active Substance: PROCHLORPERAZINE
     Dates: start: 20240904
  11. ACETAMINOPHEN [Concomitant]
     Active Substance: ACETAMINOPHEN
     Dates: start: 2017
  12. APIXABAN [Concomitant]
     Active Substance: APIXABAN
     Dates: start: 20240511

REACTIONS (8)
  - Syncope [Recovered/Resolved]
  - Nephrotic syndrome [Recovered/Resolved]
  - Portal vein thrombosis [Unknown]
  - Fatigue [Unknown]
  - Diarrhoea [Unknown]
  - Nausea [Unknown]
  - Dehydration [Unknown]
  - Orthostatic hypotension [Unknown]

NARRATIVE: CASE EVENT DATE: 20241115
